FAERS Safety Report 13004008 (Version 1)
Quarter: 2016Q4

REPORT INFORMATION
  Report Type: Spontaneous
  Country: US (occurrence: US)
  Receive Date: 20161206
  Receipt Date: 20161206
  Transmission Date: 20170207
  Serious: No
  Sender: FDA-Public Use
  Company Number: US-JAZZ-2016-US-020347

PATIENT
  Sex: Female

DRUGS (24)
  1. DOXYCYCLINE HYCLATE. [Concomitant]
     Active Substance: DOXYCYCLINE HYCLATE
  2. ADRENAL [Concomitant]
     Active Substance: EPINEPHRINE
  3. VITAMIN K2                         /00357701/ [Concomitant]
  4. THYROID HORMONES [Concomitant]
     Active Substance: UNSPECIFIED INGREDIENT
  5. FINACEA [Concomitant]
     Active Substance: AZELAIC ACID
  6. LECITHIN [Concomitant]
     Active Substance: LECITHIN
  7. METHYLPHENIDATE. [Concomitant]
     Active Substance: METHYLPHENIDATE
  8. RELIVE [Concomitant]
  9. XYREM [Suspect]
     Active Substance: SODIUM OXYBATE
     Dosage: 3 G, FIRST DOSE
     Route: 048
     Dates: start: 201210
  10. ASHWAGANDHA                        /01660201/ [Concomitant]
     Active Substance: HERBALS
  11. COENZYME Q10 [Concomitant]
     Active Substance: UBIDECARENONE
  12. XYREM [Suspect]
     Active Substance: SODIUM OXYBATE
     Indication: CATAPLEXY
     Dosage: DOSE ADJUSTMENTS
     Route: 048
     Dates: start: 201206, end: 201210
  13. ALGLUTAMIN [Concomitant]
  14. PANCREATIN [Concomitant]
     Active Substance: PANCRELIPASE
  15. ARMOUR THYROID [Concomitant]
     Active Substance: THYROID, PORCINE
  16. XYREM [Suspect]
     Active Substance: SODIUM OXYBATE
     Indication: NARCOLEPSY
     Dosage: 2.25 G, BID
     Route: 048
     Dates: start: 201205, end: 201206
  17. XYREM [Suspect]
     Active Substance: SODIUM OXYBATE
     Dosage: 3.25 G, SECOND DOSE
     Route: 048
     Dates: start: 201210
  18. ONDANSETRON HCL [Concomitant]
     Active Substance: ONDANSETRON HYDROCHLORIDE
  19. GINSENG                            /01199605/ [Concomitant]
     Active Substance: ASIAN GINSENG
  20. SAW PALMETTO                       /00833501/ [Concomitant]
     Active Substance: SAW PALMETTO
  21. TRETINOIN. [Concomitant]
     Active Substance: TRETINOIN
  22. RETIN-A [Concomitant]
     Active Substance: TRETINOIN
  23. CALCIUM + MAGNESIUM [Concomitant]
  24. VITAMIN D3 [Concomitant]
     Active Substance: CHOLECALCIFEROL

REACTIONS (1)
  - Blood thyroid stimulating hormone abnormal [Unknown]
